FAERS Safety Report 6930293-8 (Version None)
Quarter: 2010Q3

REPORT INFORMATION
  Report Type: 
  Country: None (occurrence: None)
  Receive Date: 20100818
  Receipt Date: 20100805
  Transmission Date: 20110219
  Serious: Yes (Hospitalization)
  Sender: FDA-Public Use
  Company Number: DE-CELGENEUS-062-20785-10080464

PATIENT
  Age: 49 Year
  Sex: Female
  Weight: 86.8 kg

DRUGS (5)
  1. THALIDOMIDE [Suspect]
     Indication: MULTIPLE MYELOMA
     Route: 048
     Dates: start: 20100318, end: 20100804
  2. CEFUROXIME [Concomitant]
     Indication: TONSILLITIS
     Route: 065
     Dates: start: 20100101, end: 20100101
  3. RAMIPRIL [Concomitant]
     Indication: PRODUCT USED FOR UNKNOWN INDICATION
     Route: 065
  4. TORSEMIDE [Concomitant]
     Indication: PRODUCT USED FOR UNKNOWN INDICATION
     Route: 065
  5. CALCIUM/VITAMIN D [Concomitant]
     Indication: PRODUCT USED FOR UNKNOWN INDICATION
     Route: 065

REACTIONS (2)
  - CEREBRAL ARTERY STENOSIS [None]
  - TRANSIENT ISCHAEMIC ATTACK [None]
